FAERS Safety Report 6745980-4 (Version None)
Quarter: 2010Q2

REPORT INFORMATION
  Report Type: 
  Country: None (occurrence: None)
  Receive Date: 20100526
  Receipt Date: 20100520
  Transmission Date: 20101027
  Serious: Yes (Hospitalization)
  Sender: FDA-Public Use
  Company Number: WAES 1005USA02992

PATIENT
  Age: 58 Year
  Sex: Female
  Weight: 88.905 kg

DRUGS (2)
  1. DECADRON [Suspect]
     Dosage: PO
     Route: 048
  2. THERAPUTIC RADIOPHARMACEUTICAL (UNSPECIFIED) UNK [Suspect]
     Dosage: 5XW
     Dates: start: 20100203, end: 20100219

REACTIONS (1)
  - PULMONARY EMBOLISM [None]
